FAERS Safety Report 6342667-7 (Version None)
Quarter: 2009Q3

REPORT INFORMATION
  Report Type: 
  Country: None (occurrence: None)
  Receive Date: 20090908
  Receipt Date: 20090831
  Transmission Date: 20100115
  Serious: Yes (Other)
  Sender: FDA-Public Use
  Company Number: US-B.I. PHARMACEUTICALS,INC./RIDGEFIELD-2009-BP-10220BP

PATIENT
  Age: 76 Year
  Sex: Male

DRUGS (2)
  1. COMBIVENT [Suspect]
     Indication: EMPHYSEMA
     Route: 055
  2. VERAPAMIL [Concomitant]
     Indication: HYPERTENSION

REACTIONS (3)
  - CANDIDIASIS [None]
  - GLAUCOMA [None]
  - THROAT CANCER [None]
